FAERS Safety Report 15200670 (Version 1)
Quarter: 2018Q3

REPORT INFORMATION
  Report Type: Spontaneous
  Country: DE (occurrence: DE)
  Receive Date: 20180726
  Receipt Date: 20180726
  Transmission Date: 20181010
  Serious: Yes (Other)
  Sender: FDA-Public Use
  Company Number: DE-ASTELLAS-2018US024185

PATIENT
  Sex: Female

DRUGS (1)
  1. BETMIGA [Suspect]
     Active Substance: MIRABEGRON
     Indication: URINARY INCONTINENCE
     Route: 065

REACTIONS (15)
  - Drug intolerance [Unknown]
  - Swelling [Unknown]
  - Diarrhoea [Unknown]
  - Gastric disorder [Unknown]
  - Gastritis [Unknown]
  - Sedation [Unknown]
  - Overdose [Unknown]
  - Hypersensitivity [Unknown]
  - Fatigue [Unknown]
  - Dizziness [Unknown]
  - Drug effect incomplete [Unknown]
  - Hypotonia [Unknown]
  - Dry mouth [Unknown]
  - Impaired driving ability [Unknown]
  - Somnolence [Unknown]
